FAERS Safety Report 9884401 (Version 1)
Quarter: 2014Q1

REPORT INFORMATION
  Report Type: Spontaneous
  Country: US (occurrence: None)
  Receive Date: 20140207
  Receipt Date: 20140207
  Transmission Date: 20141002
  Serious: Yes (Hospitalization)
  Sender: FDA-Public Use
  Company Number: None

PATIENT
  Sex: 0

DRUGS (2)
  1. ACETAMINOPHEN\HYDROCODONE BITARTRATE [Suspect]
     Indication: PROCEDURAL PAIN
     Dosage: 7.5325MG?4XDAY?2 TO 3 A DAY
     Dates: start: 20130924, end: 20130926
  2. ACETAMINOPHEN\HYDROCODONE BITARTRATE [Suspect]
     Indication: BACK PAIN
     Dosage: 7.5325MG?4XDAY?2 TO 3 A DAY
     Dates: start: 20130924, end: 20130926

REACTIONS (1)
  - Urinary retention [None]
